FAERS Safety Report 5864145-1 (Version None)
Quarter: 2008Q3

REPORT INFORMATION
  Report Type: 
  Country: None (occurrence: None)
  Receive Date: 20080829
  Receipt Date: 20080821
  Transmission Date: 20090109
  Serious: Yes (Hospitalization, Disabling, Congenital Anomaly, Other)
  Sender: FDA-Public Use
  Company Number: FR-AMGEN-UK271065

PATIENT
  Sex: Female
  Weight: 89 kg

DRUGS (6)
  1. ROMIPLOSTIM [Suspect]
     Indication: IDIOPATHIC THROMBOCYTOPENIC PURPURA
     Route: 058
     Dates: start: 20080125, end: 20080317
  2. DIAMICRON [Concomitant]
     Route: 048
     Dates: start: 20070101
  3. LASIX [Concomitant]
     Route: 048
     Dates: start: 20060101
  4. ALDACTONE [Concomitant]
     Route: 048
     Dates: start: 20060101
  5. URBANYL [Concomitant]
     Route: 048
     Dates: start: 20050101
  6. LYRICA [Concomitant]
     Route: 048
     Dates: start: 20070101

REACTIONS (7)
  - BRONCHITIS [None]
  - HAEMORRHAGIC DISORDER [None]
  - PARTIAL SEIZURES [None]
  - PYREXIA [None]
  - RED BLOOD CELL COUNT DECREASED [None]
  - THERAPEUTIC RESPONSE DECREASED [None]
  - THROMBOCYTOPENIA [None]
